FAERS Safety Report 7655531-8 (Version None)
Quarter: 2011Q3

REPORT INFORMATION
  Report Type: 
  Country: None (occurrence: None)
  Receive Date: 20110804
  Receipt Date: 20110803
  Transmission Date: 20111222
  Serious: Yes (Other)
  Sender: FDA-Public Use
  Company Number: GB-BRISTOL-MYERS SQUIBB COMPANY-15944788

PATIENT
  Age: 35 Year
  Sex: Female

DRUGS (21)
  1. DAUNORUBICIN HCL [Suspect]
     Indication: ACUTE MYELOID LEUKAEMIA
     Dates: start: 20101212, end: 20101221
  2. PIPERACILLIN AND TAZOBACTAM [Concomitant]
     Dates: start: 20101220, end: 20101229
  3. OMEPRAZOLE [Concomitant]
     Dates: start: 20101212
  4. TRANEXAMIC ACID [Concomitant]
  5. DIPROBASE [Concomitant]
     Dosage: CREAM
     Dates: start: 20101227, end: 20101231
  6. MYLOTARG [Suspect]
     Indication: ACUTE MYELOID LEUKAEMIA
     Dates: start: 20101212, end: 20101221
  7. METRONIDAZOLE [Concomitant]
     Dates: start: 20101222
  8. CEFTAZIDIME [Concomitant]
     Dates: start: 20101223
  9. SANDOCAL [Concomitant]
     Dates: start: 20101227, end: 20101227
  10. CYTARABINE [Suspect]
     Indication: ACUTE MYELOID LEUKAEMIA
     Dates: start: 20101212, end: 20101221
  11. ITRACONAZOLE [Concomitant]
     Dates: start: 20101212
  12. NORETHINDRONE [Concomitant]
     Dates: start: 20101213
  13. CYTARABINE [Suspect]
     Indication: MYELODYSPLASTIC SYNDROME
     Dates: start: 20101212, end: 20101221
  14. DAUNORUBICIN HCL [Suspect]
     Indication: MYELODYSPLASTIC SYNDROME
     Dates: start: 20101212, end: 20101221
  15. DIFFLAM [Concomitant]
     Dates: start: 20101212
  16. ETOPOSIDE [Suspect]
     Indication: ACUTE MYELOID LEUKAEMIA
     Dates: start: 20101212, end: 20101221
  17. ETOPOSIDE [Suspect]
     Indication: MYELODYSPLASTIC SYNDROME
     Dates: start: 20101212, end: 20101221
  18. MYLOTARG [Suspect]
     Indication: MYELODYSPLASTIC SYNDROME
     Dates: start: 20101212, end: 20101221
  19. VANCOMYCIN [Concomitant]
     Dates: start: 20101227
  20. ACYCLOVIR [Concomitant]
     Dates: start: 20101212
  21. CHLORHEXIDINE GLUCONATE [Concomitant]
     Dosage: MOUTHWASH
     Dates: start: 20101212

REACTIONS (1)
  - HYPOKALAEMIA [None]
